FAERS Safety Report 5214769-X (Version None)
Quarter: 2007Q1

REPORT INFORMATION
  Report Type: 
  Country: None (occurrence: None)
  Receive Date: 20070117
  Receipt Date: 20070110
  Transmission Date: 20070707
  Serious: Yes (Hospitalization, Other)
  Sender: FDA-Public Use
  Company Number: DEWYE808212DEC06

PATIENT
  Age: 65 Year
  Sex: Male

DRUGS (5)
  1. VENLAFAXINE HCL [Suspect]
     Dosage: 75 MG 2X PER 1 DAY ORAL; SEE IMAGE
     Route: 048
     Dates: start: 20061001, end: 20061201
  2. VENLAFAXINE HCL [Suspect]
     Dosage: 75 MG 2X PER 1 DAY ORAL; SEE IMAGE
     Route: 048
     Dates: start: 20061001, end: 20061201
  3. AMLODIPINE [Suspect]
     Dosage: 10 MG 1X PER 1 DAY ORAL
     Route: 048
     Dates: start: 20061001, end: 20061201
  4. METOPROLOL TARTRATE [Suspect]
     Dosage: 95 MG 1X PER 1 DAY ORAL
     Route: 048
     Dates: start: 20061001, end: 20061201
  5. VALORON N (NALOXONE HYDROCHLORIDE/TILIDINE HYDROCHLORIDE, , 0) [Suspect]
     Dosage: 12 DROPS PER DAY ORAL
     Route: 048
     Dates: start: 20061001, end: 20061201

REACTIONS (4)
  - DEPRESSED LEVEL OF CONSCIOUSNESS [None]
  - DISTURBANCE IN ATTENTION [None]
  - DRUG ABUSER [None]
  - GAIT DISTURBANCE [None]
